FAERS Safety Report 16169058 (Version 1)
Quarter: 2019Q2

REPORT INFORMATION
  Report Type: Spontaneous
  Country: GB (occurrence: GB)
  Receive Date: 20190408
  Receipt Date: 20190408
  Transmission Date: 20190711
  Serious: Yes (Death, Hospitalization, Other)
  Sender: FDA-Public Use
  Company Number: GB-009507513-1904GBR002036

PATIENT
  Age: 71 Year
  Sex: Male

DRUGS (1)
  1. KEYTRUDA [Suspect]
     Active Substance: PEMBROLIZUMAB
     Indication: LUNG NEOPLASM MALIGNANT
     Dosage: 1 CYCLE OF KEYTRUDA TRIPLE THERAPY, UNK

REACTIONS (2)
  - Neutropenia [Unknown]
  - Colitis [Fatal]

NARRATIVE: CASE EVENT DATE: 201903
